FAERS Safety Report 10729060 (Version 1)
Quarter: 2015Q1

REPORT INFORMATION
  Report Type: Spontaneous
  Country: US (occurrence: US)
  Receive Date: 20150122
  Receipt Date: 20150122
  Transmission Date: 20150721
  Serious: No
  Sender: FDA-Public Use
  Company Number: US-009507513-1501USA008076

PATIENT
  Age: 22 Year
  Sex: Female
  Weight: 78.5 kg

DRUGS (1)
  1. NEXPLANON [Suspect]
     Active Substance: ETONOGESTREL
     Indication: CONTRACEPTION
     Dosage: UNK
     Route: 059
     Dates: start: 20140214

REACTIONS (7)
  - Pollakiuria [Unknown]
  - Menstruation irregular [Unknown]
  - Dysuria [Unknown]
  - Amenorrhoea [Unknown]
  - Menstruation normal [Unknown]
  - Weight increased [Unknown]
  - Breast tenderness [Unknown]

NARRATIVE: CASE EVENT DATE: 20140214
